FAERS Safety Report 4358816-6 (Version None)
Quarter: 2004Q2

REPORT INFORMATION
  Report Type: 
  Country: None (occurrence: None)
  Receive Date: 20040511
  Receipt Date: 20040427
  Transmission Date: 20050107
  Serious: Yes (Hospitalization)
  Sender: FDA-Public Use
  Company Number: T02-USA-01200-01

PATIENT
  Age: 75 Year
  Sex: Male
  Weight: 75.7507 kg

DRUGS (13)
  1. MEMANTINE (OPEN LABEL, PHASE B) [Suspect]
     Indication: DEMENTIA ALZHEIMER'S TYPE
     Dosage: 20 MG QD PO
     Route: 048
     Dates: start: 20020509, end: 20020603
  2. MEMANTINE (OPEN LABEL, PHASE B) [Suspect]
     Indication: DEMENTIA ALZHEIMER'S TYPE
     Dosage: 20 MG QD PO
     Route: 048
     Dates: start: 20020605
  3. MEMANTINE (UNBLINDED, PHASE A (MEMANTINE) [Suspect]
     Indication: DEMENTIA ALZHEIMER'S TYPE
     Dosage: 10 MG BID PO
     Route: 048
     Dates: start: 20020411, end: 20020508
  4. DONEPEZIL HCL [Concomitant]
  5. ATORVASTATIN CALCIUM [Concomitant]
  6. ASPIRIN [Concomitant]
  7. TAMSULOSIN [Concomitant]
  8. VITAMIN E [Concomitant]
  9. ZOLPIDEM TARTRATE [Concomitant]
  10. HYDROCORTISONE ACETATE [Concomitant]
  11. FLOMAX [Concomitant]
  12. RISPERDAL [Concomitant]
  13. NEXIUM [Concomitant]

REACTIONS (9)
  - ATELECTASIS [None]
  - ATRIAL FLUTTER [None]
  - DIZZINESS [None]
  - EJECTION FRACTION DECREASED [None]
  - ELECTROCARDIOGRAM ST SEGMENT DEPRESSION [None]
  - LOSS OF CONSCIOUSNESS [None]
  - MITRAL VALVE INCOMPETENCE [None]
  - SINUS BRADYCARDIA [None]
  - SUPRAVENTRICULAR TACHYCARDIA [None]
